FAERS Safety Report 4410478-5 (Version None)
Quarter: 2004Q3

REPORT INFORMATION
  Report Type: 
  Country: None (occurrence: None)
  Receive Date: 20040726
  Receipt Date: 20040709
  Transmission Date: 20050211
  Serious: Yes (Hospitalization)
  Sender: FDA-Public Use
  Company Number: 800056

PATIENT
  Age: 69 Year
  Sex: Male
  Weight: 88.2 kg

DRUGS (15)
  1. EXTRANEAL [Suspect]
     Indication: PERITONEAL DIALYSIS
     Dosage: 2 L; QD; INTRAPERITONEAL
     Route: 033
     Dates: start: 20010809, end: 20040420
  2. DIANEAL [Concomitant]
  3. ARANSP [Concomitant]
  4. AMIODARONE HCL [Concomitant]
  5. ENALAPRIL MALEATE [Concomitant]
  6. CARVEDILOL [Concomitant]
  7. FUROSEMIDE [Concomitant]
  8. OMEPRAZOLE [Concomitant]
  9. INSULIN [Concomitant]
  10. ATORVASTATIN CALCIUM [Concomitant]
  11. ASPIRIN [Concomitant]
  12. CALCITRIOL [Concomitant]
  13. CALCIUM ACETATE [Concomitant]
  14. VITAMIN PREPARATIONS [Concomitant]
  15. IRON [Concomitant]

REACTIONS (1)
  - GASTRIC ULCER [None]
